FAERS Safety Report 25502439 (Version 3)
Quarter: 2025Q3

REPORT INFORMATION
  Report Type: Spontaneous
  Country: JP (occurrence: JP)
  Receive Date: 20250702
  Receipt Date: 20250814
  Transmission Date: 20251020
  Serious: Yes (Other)
  Sender: NOVO NORDISK
  Company Number: JP-NOVOPROD-1267733

PATIENT
  Age: 34 Year
  Sex: Female
  Weight: 47 kg

DRUGS (12)
  1. SOGROYA [Suspect]
     Active Substance: SOMAPACITAN-BECO
     Dosage: 3.5 MG, QW
     Route: 058
     Dates: start: 20240110
  2. SOGROYA [Suspect]
     Active Substance: SOMAPACITAN-BECO
     Dosage: 1.5 MG, QW
     Route: 058
     Dates: start: 20250514
  3. SOGROYA [Suspect]
     Active Substance: SOMAPACITAN-BECO
     Indication: Growth hormone deficiency
     Dosage: 1.5 MG, QW
     Route: 058
     Dates: start: 20230308
  4. SOGROYA [Suspect]
     Active Substance: SOMAPACITAN-BECO
     Dosage: 2 MG, QW
     Route: 058
     Dates: start: 20230531
  5. SOGROYA [Suspect]
     Active Substance: SOMAPACITAN-BECO
     Dosage: 3 MG, QW
     Route: 058
     Dates: start: 20230913
  6. SOGROYA [Suspect]
     Active Substance: SOMAPACITAN-BECO
     Dosage: 5 MG, QW
     Route: 058
     Dates: end: 202406
  7. SOGROYA [Suspect]
     Active Substance: SOMAPACITAN-BECO
     Dosage: 4 MG, QW
     Route: 058
     Dates: start: 20240214
  8. SOGROYA [Suspect]
     Active Substance: SOMAPACITAN-BECO
     Dosage: 4.5 MG, QW
     Route: 058
     Dates: start: 20240501
  9. SOGROYA [Suspect]
     Active Substance: SOMAPACITAN-BECO
     Dosage: 5 MG, QW
     Route: 058
     Dates: start: 20240605
  10. SOGROYA [Suspect]
     Active Substance: SOMAPACITAN-BECO
     Dosage: 1.5 MG, QW
     Route: 058
     Dates: end: 20240807
  11. DESMOPRESSIN ACETATE [Concomitant]
     Active Substance: DESMOPRESSIN ACETATE
     Indication: Product used for unknown indication
  12. LEVOTHYROXINE [Concomitant]
     Active Substance: LEVOTHYROXINE
     Indication: Product used for unknown indication

REACTIONS (2)
  - Placenta praevia [Unknown]
  - Maternal exposure during pregnancy [Recovered/Resolved]
